FAERS Safety Report 14599020 (Version 1)
Quarter: 2018Q1

REPORT INFORMATION
  Report Type: Spontaneous
  Country: US (occurrence: US)
  Receive Date: 20180302
  Receipt Date: 20180302
  Transmission Date: 20180509
  Serious: No
  Sender: FDA-Public Use
  Company Number: None

PATIENT
  Age: 66 Year
  Sex: Male
  Weight: 54 kg

DRUGS (7)
  1. SUMATRIPTAN. [Concomitant]
     Active Substance: SUMATRIPTAN
  2. VIT B-2 [Concomitant]
  3. FLUOCINONIDE. [Concomitant]
     Active Substance: FLUOCINONIDE
  4. CREST PRO-HEALTH CLINICAL [Suspect]
     Active Substance: CETYLPYRIDINIUM CHLORIDE
     Indication: GINGIVITIS
     Dosage: ?          QUANTITY:32 OUNCE(S);?
     Route: 048
     Dates: start: 20180301, end: 20180301
  5. LITTLE CRITTERS GUMMY VITAMINS [Concomitant]
  6. CREST PRO-HEALTH CLINICAL [Suspect]
     Active Substance: CETYLPYRIDINIUM CHLORIDE
     Indication: GINGIVAL BLEEDING
     Dosage: ?          QUANTITY:32 OUNCE(S);?
     Route: 048
     Dates: start: 20180301, end: 20180301
  7. MAGNESIUM [Concomitant]
     Active Substance: MAGNESIUM

REACTIONS (3)
  - Burn oral cavity [None]
  - Tongue disorder [None]
  - Dysgeusia [None]

NARRATIVE: CASE EVENT DATE: 20180301
